FAERS Safety Report 14706256 (Version 1)
Quarter: 2018Q2

REPORT INFORMATION
  Report Type: Spontaneous
  Country: IT (occurrence: IT)
  Receive Date: 20180402
  Receipt Date: 20180402
  Transmission Date: 20180711
  Serious: Yes (Hospitalization)
  Sender: FDA-Public Use
  Company Number: IT-PFIZER INC-2018129559

PATIENT
  Age: 65 Year
  Sex: Female

DRUGS (2)
  1. XANAX [Suspect]
     Active Substance: ALPRAZOLAM
     Dosage: 10 DF, UNK
     Route: 048
     Dates: start: 20180220, end: 20180220
  2. LEXOTAN [Suspect]
     Active Substance: BROMAZEPAM
     Dosage: 10 DF, UNK
     Route: 048
     Dates: start: 20180220, end: 20180220

REACTIONS (3)
  - Suicide attempt [Recovered/Resolved]
  - Sopor [Recovered/Resolved]
  - Drug abuse [Recovered/Resolved]

NARRATIVE: CASE EVENT DATE: 20180220
